FAERS Safety Report 19991526 (Version 1)
Quarter: 2021Q4

REPORT INFORMATION
  Report Type: Spontaneous
  Country: US (occurrence: US)
  Receive Date: 20211025
  Receipt Date: 20211025
  Transmission Date: 20220304
  Serious: Yes (Other)
  Sender: FDA-Public Use
  Company Number: US-SANOFI-00814825

PATIENT
  Sex: Female

DRUGS (2)
  1. ASPERCREME NOS [Suspect]
     Active Substance: MENTHOL\TROLAMINE SALICYLATE
     Indication: Arthritis
  2. DICLOFENAC [Suspect]
     Active Substance: DICLOFENAC

REACTIONS (2)
  - Haemorrhage [Unknown]
  - Micturition urgency [Unknown]
